FAERS Safety Report 23825394 (Version 1)
Quarter: 2024Q2

REPORT INFORMATION
  Report Type: Spontaneous
  Country: KR (occurrence: KR)
  Receive Date: 20240507
  Receipt Date: 20240507
  Transmission Date: 20240715
  Serious: Yes (Hospitalization)
  Sender: FDA-Public Use
  Company Number: KR-DSJP-DSJ-2024-119436

PATIENT
  Age: 87 Year
  Sex: Male
  Weight: 75 kg

DRUGS (9)
  1. EDOXABAN [Suspect]
     Active Substance: EDOXABAN
     Indication: Product used for unknown indication
     Dosage: UNK
     Route: 065
  2. ZILTIVEKIMAB [Suspect]
     Active Substance: ZILTIVEKIMAB
     Indication: Arteriosclerosis
     Dosage: UNK
     Route: 065
     Dates: start: 20240329, end: 20240329
  3. HARNAL [Concomitant]
     Active Substance: TAMSULOSIN HYDROCHLORIDE
     Indication: Product used for unknown indication
     Dosage: UNK
     Route: 065
  4. PROSCAR [Concomitant]
     Active Substance: FINASTERIDE
     Indication: Product used for unknown indication
     Dosage: UNK
     Route: 065
  5. NEBISTOL [Concomitant]
     Indication: Product used for unknown indication
     Dosage: UNK
     Route: 065
  6. TORSEM [Concomitant]
     Indication: Product used for unknown indication
     Dosage: UNK
     Route: 065
  7. URETIN [AZOSEMIDE] [Concomitant]
     Indication: Product used for unknown indication
     Dosage: UNK
     Route: 065
  8. ASTHONE [Concomitant]
     Indication: Product used for unknown indication
     Dosage: UNK
     Route: 065
  9. LASIX [Concomitant]
     Active Substance: FUROSEMIDE
     Indication: Product used for unknown indication
     Dosage: UNK
     Route: 065

REACTIONS (3)
  - Cardiac failure [Recovered/Resolved]
  - Urinary retention [Unknown]
  - Localised oedema [Unknown]

NARRATIVE: CASE EVENT DATE: 20240329
